FAERS Safety Report 18034253 (Version 2)
Quarter: 2020Q3

REPORT INFORMATION
  Report Type: Spontaneous
  Country: AU (occurrence: AU)
  Receive Date: 20200716
  Receipt Date: 20200817
  Transmission Date: 20201103
  Serious: Yes (Hospitalization)
  Sender: FDA-Public Use
  Company Number: NVSC2020AU199276

PATIENT
  Age: 18 Year
  Sex: Female

DRUGS (2)
  1. TACROLIMUS. [Suspect]
     Active Substance: TACROLIMUS
     Indication: LUPUS NEPHRITIS
     Dosage: UNK
     Route: 065
  2. RITUXIMAB. [Suspect]
     Active Substance: RITUXIMAB
     Indication: LUPUS NEPHRITIS
     Dosage: UNK
     Route: 065

REACTIONS (3)
  - Bacteraemia [Unknown]
  - Product use in unapproved indication [Unknown]
  - Thrombosis [Unknown]
